FAERS Safety Report 21516777 (Version 1)
Quarter: 2022Q4

REPORT INFORMATION
  Report Type: Spontaneous
  Country: US (occurrence: US)
  Receive Date: 20221028
  Receipt Date: 20221028
  Transmission Date: 20230113
  Serious: No
  Sender: FDA-Public Use
  Company Number: US-BAUSCHBL-2022BNL001282

PATIENT
  Sex: Female

DRUGS (1)
  1. LACRISERT [Suspect]
     Active Substance: HYDROXYPROPYL CELLULOSE
     Indication: Dry eye
     Route: 047

REACTIONS (5)
  - Application site pain [Unknown]
  - Asthenopia [Unknown]
  - Vision blurred [Unknown]
  - Product availability issue [Unknown]
  - Product use issue [Unknown]
